FAERS Safety Report 23040870 (Version 1)
Quarter: 2023Q4

REPORT INFORMATION
  Report Type: Spontaneous
  Country: US (occurrence: US)
  Receive Date: 20231006
  Receipt Date: 20231006
  Transmission Date: 20240110
  Serious: Yes (Hospitalization, Other)
  Sender: FDA-Public Use
  Company Number: US-PPDUS-2023ST002044

PATIENT
  Age: 81 Year
  Sex: Female

DRUGS (5)
  1. ORSERDU [Suspect]
     Active Substance: ELACESTRANT
     Indication: Product used for unknown indication
     Route: 048
     Dates: start: 20230508, end: 20230719
  2. AMLODIPINE  BEYLATE [Concomitant]
     Indication: Product used for unknown indication
  3. ATORVASTATIN CALCIUM [Concomitant]
     Active Substance: ATORVASTATIN CALCIUM
     Indication: Product used for unknown indication
  4. LOSARTAN POTASSIUM [Concomitant]
     Active Substance: LOSARTAN POTASSIUM
     Indication: Product used for unknown indication
  5. FOLIC ACID [Concomitant]
     Active Substance: FOLIC ACID
     Indication: Product used for unknown indication

REACTIONS (6)
  - Biliary obstruction [Unknown]
  - Metastases to pancreas [Unknown]
  - Tumour marker increased [Not Recovered/Not Resolved]
  - Pruritus [Not Recovered/Not Resolved]
  - Yellow skin [Not Recovered/Not Resolved]
  - Blood bilirubin increased [Unknown]
